FAERS Safety Report 6069392-4 (Version None)
Quarter: 2009Q1

REPORT INFORMATION
  Report Type: 
  Country: None (occurrence: None)
  Receive Date: 20090206
  Receipt Date: 20090129
  Transmission Date: 20090719
  Serious: Yes (Other)
  Sender: FDA-Public Use
  Company Number: US-GENENTECH-276468

PATIENT
  Sex: Female

DRUGS (4)
  1. AVASTIN [Suspect]
     Indication: COLON CANCER
     Dosage: UNK
     Route: 042
     Dates: start: 20060101
  2. OXALIPLATIN [Suspect]
     Indication: COLON CANCER
     Dosage: UNK
     Route: 042
     Dates: start: 20060101
  3. LEUCOVORIN CALCIUM [Suspect]
     Indication: COLON CANCER
     Dosage: UNK
     Dates: start: 20060101
  4. FLUOROURACIL [Suspect]
     Indication: COLON CANCER
     Dosage: UNK
     Dates: start: 20060101

REACTIONS (2)
  - NEUROPATHY PERIPHERAL [None]
  - PARAESTHESIA [None]
